FAERS Safety Report 10321993 (Version 2)
Quarter: 2015Q1

REPORT INFORMATION
  Report Type: Other
  Country: US (occurrence: US)
  Receive Date: 20140719
  Receipt Date: 20150218
  Transmission Date: 20150720
  Serious: Yes (Death, Hospitalization)
  Sender: FDA-Public Use
  Company Number: US-GSKPPD-2014GSK030075

PATIENT
  Age: 62 Year
  Sex: Male

DRUGS (7)
  1. COUMADIN [Concomitant]
     Active Substance: WARFARIN SODIUM
  2. VERAPAMIL [Concomitant]
     Active Substance: VERAPAMIL HYDROCHLORIDE
  3. METOPROLOL [Concomitant]
     Active Substance: METOPROLOL
  4. AVANDIA [Suspect]
     Active Substance: ROSIGLITAZONE MALEATE
     Indication: DIABETES MELLITUS
     Dosage: DATES OF AVANDIA USE COULD NOT BE CONFIRMED IN RECORDS REVIEWED
     Route: 048
  5. CLONIDINE. [Concomitant]
     Active Substance: CLONIDINE
  6. CAPOTEN [Concomitant]
     Active Substance: CAPTOPRIL
  7. LASIX [Concomitant]
     Active Substance: FUROSEMIDE

REACTIONS (2)
  - Coronary artery disease [Recovered/Resolved]
  - Coronary artery disease [Fatal]

NARRATIVE: CASE EVENT DATE: 20050222
